FAERS Safety Report 15839356 (Version 2)
Quarter: 2019Q1

REPORT INFORMATION
  Report Type: Spontaneous
  Country: AT (occurrence: AT)
  Receive Date: 20190117
  Receipt Date: 20190212
  Transmission Date: 20190417
  Serious: Yes (Other)
  Sender: FDA-Public Use
  Company Number: AT-NAPPMUNDI-GBR-2018-0062881

PATIENT
  Age: 67 Year
  Sex: Male

DRUGS (48)
  1. SUBOXONE [Suspect]
     Active Substance: BUPRENORPHINE HYDROCHLORIDE\NALOXONE HYDROCHLORIDE
     Dosage: 8MG DAILY + 2MG
     Route: 065
  2. IMODIUM [Suspect]
     Active Substance: LOPERAMIDE HYDROCHLORIDE
     Indication: DIARRHOEA
     Dosage: UNK (AFTER EVERY LIQUID STOOL)
     Route: 065
  3. QUETIAPINE. [Suspect]
     Active Substance: QUETIAPINE
     Dosage: 100MG DAILY
     Route: 048
  4. LYRICA [Suspect]
     Active Substance: PREGABALIN
     Dosage: 75 MG, THREE TIMES PER DAY
     Route: 065
  5. FENTANYL. [Suspect]
     Active Substance: FENTANYL
     Indication: PRODUCT USED FOR UNKNOWN INDICATION
     Dosage: 600 MCG, BID (2 TIMES/DAY)
     Route: 065
  6. SUBOXONE [Suspect]
     Active Substance: BUPRENORPHINE HYDROCHLORIDE\NALOXONE HYDROCHLORIDE
     Dosage: 8MG, PER DAY
     Route: 048
  7. EFFENTORA [Suspect]
     Active Substance: FENTANYL CITRATE
     Dosage: 600MCG, 8 TIMES PER DAY
     Route: 065
  8. SEROQUEL [Suspect]
     Active Substance: QUETIAPINE FUMARATE
     Indication: PRODUCT USED FOR UNKNOWN INDICATION
     Dosage: 25 MG,DAILY
     Route: 065
  9. MIRTAZAPIN [Suspect]
     Active Substance: MIRTAZAPINE
     Indication: PRODUCT USED FOR UNKNOWN INDICATION
     Dosage: 30MG, DAILY
     Route: 065
  10. SUBOXONE [Suspect]
     Active Substance: BUPRENORPHINE HYDROCHLORIDE\NALOXONE HYDROCHLORIDE
     Dosage: 8MG, PER DAY
     Route: 065
  11. SUBOXONE [Suspect]
     Active Substance: BUPRENORPHINE HYDROCHLORIDE\NALOXONE HYDROCHLORIDE
     Dosage: 8MG, UNK
     Route: 065
  12. BUPRENORPHINE TRANSDERMAL SYSTEM [Suspect]
     Active Substance: BUPRENORPHINE
     Dosage: 105 MCG, UNK
     Route: 062
     Dates: start: 201308, end: 201309
  13. TEMESTA                            /00273201/ [Suspect]
     Active Substance: LORAZEPAM
     Dosage: 2.5 MG, UNK
     Route: 065
  14. HYDAL [Suspect]
     Active Substance: HYDROMORPHONE HYDROCHLORIDE
     Dosage: 5.2MG, 2-3 TIMES DAILY
     Route: 065
  15. SEROQUEL [Suspect]
     Active Substance: QUETIAPINE FUMARATE
     Dosage: 100MG, DAILY
     Route: 065
     Dates: start: 20150824
  16. SUBOXONE [Suspect]
     Active Substance: BUPRENORPHINE HYDROCHLORIDE\NALOXONE HYDROCHLORIDE
     Dosage: 2MG, 4 TIMES PER DAY
     Route: 048
  17. BUPRENORPHINE TRANSDERMAL SYSTEM [Suspect]
     Active Substance: BUPRENORPHINE
     Dosage: 140 MCG, UNK
     Route: 062
     Dates: start: 20161014, end: 20161102
  18. DULOXETINE. [Suspect]
     Active Substance: DULOXETINE
     Indication: PRODUCT USED FOR UNKNOWN INDICATION
     Dosage: 60 MG, BID
     Route: 065
     Dates: start: 201308
  19. EFFENTORA [Suspect]
     Active Substance: FENTANYL CITRATE
     Dosage: 400 MCG, 2-3 TIMES DAILY
     Route: 065
  20. HYDAL [Suspect]
     Active Substance: HYDROMORPHONE HYDROCHLORIDE
     Dosage: 4 MG,  BID
     Route: 065
  21. HYDAL [Suspect]
     Active Substance: HYDROMORPHONE HYDROCHLORIDE
     Dosage: 5.2 MG, UP TO 3 TIMES DAILY
     Route: 065
  22. QUETIAPINE. [Suspect]
     Active Substance: QUETIAPINE
     Indication: PRODUCT USED FOR UNKNOWN INDICATION
     Dosage: 25 MG, DAILY
     Route: 065
  23. BUPRENORPHINE TRANSDERMAL SYSTEM [Suspect]
     Active Substance: BUPRENORPHINE
     Indication: PRODUCT USED FOR UNKNOWN INDICATION
     Dosage: 70 MCG, UNK
     Route: 062
     Dates: start: 20130826, end: 20130919
  24. DULOXETINE. [Suspect]
     Active Substance: DULOXETINE
     Dosage: 60 MG, TWO ONE TIME PER DAY
     Route: 065
  25. DULOXETINE. [Suspect]
     Active Substance: DULOXETINE
     Dosage: 30MG, BID
     Route: 065
  26. EFFENTORA [Suspect]
     Active Substance: FENTANYL CITRATE
     Indication: PRODUCT USED FOR UNKNOWN INDICATION
     Dosage: 100MCG, 4 TIMES PER DAY
     Route: 065
     Dates: start: 201308
  27. HYDAL [Suspect]
     Active Substance: HYDROMORPHONE HYDROCHLORIDE
     Indication: PAIN
     Dosage: 5.2MG, 4 TIMES A DAY
     Route: 065
     Dates: start: 201308
  28. PANTIP [Suspect]
     Active Substance: PANTOPRAZOLE SODIUM
     Dosage: 40 MG, DAILY
     Route: 065
  29. PANTIP [Suspect]
     Active Substance: PANTOPRAZOLE SODIUM
     Dosage: 40MG, TWICE DAILY
     Route: 065
  30. BUPRENORPHINE TRANSDERMAL SYSTEM [Suspect]
     Active Substance: BUPRENORPHINE
     Dosage: 140 MCG, UNK
     Route: 062
     Dates: start: 20150824, end: 20150828
  31. TEMESTA                            /00273201/ [Suspect]
     Active Substance: LORAZEPAM
     Indication: RESTLESSNESS
     Dosage: 2.5 MG, UNK (FOR STRONG RESTLESSNESS)
     Route: 065
     Dates: start: 201308
  32. EFFENTORA [Suspect]
     Active Substance: FENTANYL CITRATE
     Dosage: 400 MCG, 2 TABLETS (3-4 DAILY)
     Route: 065
  33. HYDAL [Suspect]
     Active Substance: HYDROMORPHONE HYDROCHLORIDE
     Dosage: 2.6MG, UNK
     Route: 065
  34. LYRICA [Suspect]
     Active Substance: PREGABALIN
     Indication: PRODUCT USED FOR UNKNOWN INDICATION
     Dosage: 75 MG, DAILY
     Route: 065
  35. PANTIP [Suspect]
     Active Substance: PANTOPRAZOLE SODIUM
     Indication: PRODUCT USED FOR UNKNOWN INDICATION
     Dosage: 40 MG, TWICE DAILY (1-0-1)
     Route: 065
     Dates: start: 201308
  36. OMEGAVEN /01653002/ [Suspect]
     Active Substance: HERBALS
     Indication: PRODUCT USED FOR UNKNOWN INDICATION
     Dosage: UNK
     Route: 065
  37. SUBOXONE [Suspect]
     Active Substance: BUPRENORPHINE HYDROCHLORIDE\NALOXONE HYDROCHLORIDE
     Indication: PAIN
     Dosage: 12MG AND 4MG, BID
     Route: 065
  38. SUBOXONE [Suspect]
     Active Substance: BUPRENORPHINE HYDROCHLORIDE\NALOXONE HYDROCHLORIDE
     Dosage: 2MG, 6 TIMES PER DAY
     Route: 065
  39. SUBOXONE [Suspect]
     Active Substance: BUPRENORPHINE HYDROCHLORIDE\NALOXONE HYDROCHLORIDE
     Dosage: 2MG, 4 TIMES A DAY
     Route: 065
  40. SUBOXONE [Suspect]
     Active Substance: BUPRENORPHINE HYDROCHLORIDE\NALOXONE HYDROCHLORIDE
     Dosage: 8MG, DAILY
     Route: 060
  41. EFFENTORA [Suspect]
     Active Substance: FENTANYL CITRATE
     Dosage: 800MCG, 3-4 TIMES PER DAY
     Route: 065
  42. EFFENTORA [Suspect]
     Active Substance: FENTANYL CITRATE
     Dosage: 400MCG, TID
     Route: 065
  43. DRONABINOL. [Suspect]
     Active Substance: DRONABINOL
     Indication: PRODUCT USED FOR UNKNOWN INDICATION
     Dosage: 6 DROP, 3 TIMES PER DAY
     Route: 065
     Dates: start: 201308
  44. DIPIDOLOR [Suspect]
     Active Substance: PIRITRAMIDE
     Indication: PRODUCT USED FOR UNKNOWN INDICATION
     Dosage: 15 MCG, UNK (AS SHORT INFUSION)
     Route: 065
  45. LEXOTANIL [Suspect]
     Active Substance: BROMAZEPAM
     Indication: PRODUCT USED FOR UNKNOWN INDICATION
     Dosage: 3 MG, 1/2 PER DAY
     Route: 065
  46. SOLUVIT                            /01591701/ [Suspect]
     Active Substance: VITAMINS
     Indication: PRODUCT USED FOR UNKNOWN INDICATION
     Dosage: UNK
     Route: 065
  47. CATAPRESAN                         /00171101/ [Suspect]
     Active Substance: CLONIDINE
     Indication: RESTLESSNESS
     Dosage: 0.15MG, DAILY
     Route: 065
  48. CATAPRESAN                         /00171101/ [Suspect]
     Active Substance: CLONIDINE
     Dosage: 0.15 MG, UNK (WHEN RESTLESS 1 TIME/DAY)
     Route: 065

REACTIONS (12)
  - Diarrhoea [Unknown]
  - Flatulence [None]
  - Vertigo [Unknown]
  - Drug withdrawal syndrome [Recovered/Resolved]
  - Drug dependence [Unknown]
  - Abdominal pain [Unknown]
  - Tremor [Unknown]
  - Depression [Unknown]
  - Decreased appetite [Unknown]
  - Therapeutic response decreased [Unknown]
  - Nausea [Unknown]
  - Abdominal distension [None]
